FAERS Safety Report 12769980 (Version 1)
Quarter: 2016Q3

REPORT INFORMATION
  Report Type: Spontaneous
  Country: FR (occurrence: FR)
  Receive Date: 20160922
  Receipt Date: 20160922
  Transmission Date: 20161109
  Serious: Yes (Death)
  Sender: FDA-Public Use
  Company Number: FR-ACCORD-044141

PATIENT
  Age: 72 Year
  Sex: Male

DRUGS (2)
  1. CISPLATIN MYLAN [Suspect]
     Active Substance: CISPLATIN
     Indication: BRONCHIAL CARCINOMA
     Dosage: UNIQUE DOSE
     Route: 042
     Dates: start: 20160525
  2. GEMCITABINE ACCORD [Suspect]
     Active Substance: GEMCITABINE HYDROCHLORIDE
     Indication: BRONCHIAL CARCINOMA
     Dosage: UNIQUE DOSE, TWO TIMES AT TOTAL
     Route: 042
     Dates: start: 20160525, end: 20160602

REACTIONS (3)
  - Encephalopathy [Fatal]
  - Acute kidney injury [Fatal]
  - Pancytopenia [Fatal]

NARRATIVE: CASE EVENT DATE: 201606
